FAERS Safety Report 8818604 (Version 1)
Quarter: 2012Q4

REPORT INFORMATION
  Report Type: 
  Country: FR (occurrence: FR)
  Receive Date: 20121001
  Receipt Date: 20121001
  Transmission Date: 20130627
  Serious: Yes (Hospitalization)
  Sender: FDA-Public Use
  Company Number: FR-PFIZER INC-2012237017

PATIENT
  Sex: Female

DRUGS (4)
  1. EFFEXOR LP [Suspect]
     Dosage: 75 mg, 2x/day
     Route: 048
     Dates: start: 201108, end: 20110830
  2. IMOVANE [Suspect]
     Dosage: 7.5 mg, 1x/day
     Route: 048
     Dates: start: 201108, end: 20110830
  3. HALDOL [Suspect]
     Dosage: 1.5 mg, daily
     Route: 048
     Dates: start: 201108, end: 20110830
  4. ZYPREXA [Suspect]
     Dosage: 5 mg, 2x/day
     Route: 048
     Dates: start: 20110825, end: 20110830

REACTIONS (4)
  - Fall [Recovered/Resolved with Sequelae]
  - Laryngospasm [Recovered/Resolved with Sequelae]
  - Extrapyramidal disorder [Not Recovered/Not Resolved]
  - Vocal cord paralysis [Unknown]
